FAERS Safety Report 21099555 (Version 1)
Quarter: 2022Q3

REPORT INFORMATION
  Report Type: Spontaneous
  Country: US (occurrence: US)
  Receive Date: 20220719
  Receipt Date: 20220719
  Transmission Date: 20221027
  Serious: No
  Sender: FDA-Public Use
  Company Number: US-MYLANLABS-2022M1037684

PATIENT
  Sex: Female

DRUGS (4)
  1. FORMOTEROL [Suspect]
     Active Substance: FORMOTEROL
     Indication: Chronic obstructive pulmonary disease
     Dosage: UNK, BID( 20MCG/2ML TWICE A DAY)
     Route: 055
     Dates: start: 202204
  2. BUDESONIDE [Concomitant]
     Active Substance: BUDESONIDE
     Dosage: UNK
     Route: 055
  3. ALBUTEROL\IPRATROPIUM [Concomitant]
     Active Substance: ALBUTEROL\IPRATROPIUM
     Dosage: UNK
     Route: 055
  4. VENTOLIN [Concomitant]
     Active Substance: ALBUTEROL SULFATE
     Dosage: UNK
     Route: 055

REACTIONS (2)
  - Pharyngeal swelling [Not Recovered/Not Resolved]
  - Dyspnoea [Not Recovered/Not Resolved]
